FAERS Safety Report 19865838 (Version 1)
Quarter: 2021Q3

REPORT INFORMATION
  Report Type: Spontaneous
  Country: ES (occurrence: ES)
  Receive Date: 20210921
  Receipt Date: 20210921
  Transmission Date: 20211014
  Serious: No
  Sender: FDA-Public Use
  Company Number: ES-LUPIN PHARMACEUTICALS INC.-2021-17829

PATIENT
  Age: 11 Year
  Sex: Female

DRUGS (9)
  1. METHOTREXATE. [Concomitant]
     Active Substance: METHOTREXATE
     Indication: POLYARTERITIS NODOSA
  2. COLCHICINE. [Concomitant]
     Active Substance: COLCHICINE
     Indication: IMMUNOSUPPRESSANT DRUG THERAPY
     Dosage: UNK
     Route: 065
  3. METHOTREXATE. [Concomitant]
     Active Substance: METHOTREXATE
     Indication: IMMUNOSUPPRESSANT DRUG THERAPY
     Dosage: UNK
     Route: 065
  4. TOCILIZUMAB. [Concomitant]
     Active Substance: TOCILIZUMAB
     Indication: IMMUNOSUPPRESSANT DRUG THERAPY
     Dosage: UNK
     Route: 065
  5. HYDROXYCHLOROQUINE [Suspect]
     Active Substance: HYDROXYCHLOROQUINE
     Indication: COVID-19
     Dosage: 6.5 MILLIGRAM/KILOGRAM, PER DAY (DOSING EVERY 12 HOURS)
     Route: 048
  6. PREDNISONE. [Concomitant]
     Active Substance: PREDNISONE
     Indication: IMMUNOSUPPRESSANT DRUG THERAPY
     Dosage: 2.5 MILLIGRAM PER 48 HOUR
     Route: 065
  7. COLCHICINE. [Concomitant]
     Active Substance: COLCHICINE
     Indication: POLYARTERITIS NODOSA
  8. TOCILIZUMAB. [Concomitant]
     Active Substance: TOCILIZUMAB
     Indication: POLYARTERITIS NODOSA
  9. HYDROXYCHLOROQUINE [Suspect]
     Active Substance: HYDROXYCHLOROQUINE
     Dosage: 10 MILLIGRAM/KILOGRAM, PER DAY (DOSING EVERY 12 HOURS)
     Route: 048

REACTIONS (1)
  - Off label use [Unknown]
